FAERS Safety Report 6392260-5 (Version None)
Quarter: 2009Q4

REPORT INFORMATION
  Report Type: 
  Country: None (occurrence: None)
  Receive Date: 20091007
  Receipt Date: 20090930
  Transmission Date: 20100525
  Serious: Yes (Death, Hospitalization, Other)
  Sender: FDA-Public Use
  Company Number: US-BAXTER-2009BH010937

PATIENT
  Age: 72 Year
  Sex: Male
  Weight: 73 kg

DRUGS (58)
  1. HEPARIN SODIUM INJECTION [Suspect]
     Indication: ANTIPLATELET THERAPY
     Route: 042
     Dates: start: 20080311, end: 20080311
  2. HEPARIN SODIUM INJECTION [Suspect]
     Indication: CATHETERISATION CARDIAC
     Route: 042
     Dates: start: 20080311, end: 20080311
  3. HEPARIN SODIUM INJECTION [Suspect]
     Indication: STENT PLACEMENT
     Route: 042
     Dates: start: 20080311, end: 20080311
  4. HEPARIN SODIUM INJECTION [Suspect]
     Route: 042
     Dates: start: 20080311, end: 20080311
  5. HEPARIN SODIUM INJECTION [Suspect]
     Route: 042
     Dates: start: 20080311, end: 20080311
  6. HEPARIN SODIUM INJECTION [Suspect]
     Route: 042
     Dates: start: 20080311, end: 20080311
  7. HEPARIN SODIUM INJECTION [Suspect]
     Route: 041
     Dates: start: 20080312, end: 20080313
  8. HEPARIN SODIUM INJECTION [Suspect]
     Route: 041
     Dates: start: 20080312, end: 20080313
  9. HEPARIN SODIUM INJECTION [Suspect]
     Route: 041
     Dates: start: 20080312, end: 20080313
  10. HEPARIN SODIUM INJECTION [Suspect]
     Route: 042
     Dates: start: 20080311, end: 20080311
  11. HEPARIN SODIUM INJECTION [Suspect]
     Route: 042
     Dates: start: 20080311, end: 20080311
  12. HEPARIN SODIUM INJECTION [Suspect]
     Route: 042
     Dates: start: 20080311, end: 20080311
  13. HEPARIN SODIUM INJECTION [Suspect]
     Route: 041
     Dates: start: 20080313, end: 20080313
  14. HEPARIN SODIUM INJECTION [Suspect]
     Route: 041
     Dates: start: 20080313, end: 20080313
  15. HEPARIN SODIUM INJECTION [Suspect]
     Route: 041
     Dates: start: 20080313, end: 20080313
  16. HEPARIN SODIUM INJECTION [Suspect]
     Route: 041
     Dates: start: 20080311, end: 20080311
  17. HEPARIN SODIUM INJECTION [Suspect]
     Route: 041
     Dates: start: 20080311, end: 20080311
  18. HEPARIN SODIUM INJECTION [Suspect]
     Route: 041
     Dates: start: 20080311, end: 20080311
  19. HEPARIN SODIUM INJECTION [Suspect]
     Route: 040
     Dates: start: 20080313, end: 20080313
  20. HEPARIN SODIUM INJECTION [Suspect]
     Route: 040
     Dates: start: 20080313, end: 20080313
  21. HEPARIN SODIUM INJECTION [Suspect]
     Route: 040
     Dates: start: 20080313, end: 20080313
  22. HEPARIN SODIUM INJECTION [Suspect]
     Route: 041
     Dates: start: 20080311, end: 20080311
  23. HEPARIN SODIUM INJECTION [Suspect]
     Route: 041
     Dates: start: 20080311, end: 20080311
  24. HEPARIN SODIUM INJECTION [Suspect]
     Route: 041
     Dates: start: 20080311, end: 20080311
  25. HEPARIN SODIUM INJECTION [Suspect]
     Route: 041
     Dates: start: 20080311, end: 20080311
  26. HEPARIN SODIUM INJECTION [Suspect]
     Route: 041
     Dates: start: 20080311, end: 20080311
  27. HEPARIN SODIUM INJECTION [Suspect]
     Route: 041
     Dates: start: 20080311, end: 20080311
  28. HEPARIN SODIUM INJECTION [Suspect]
     Route: 041
     Dates: start: 20080312, end: 20080312
  29. HEPARIN SODIUM INJECTION [Suspect]
     Route: 041
     Dates: start: 20080312, end: 20080312
  30. HEPARIN SODIUM INJECTION [Suspect]
     Route: 041
     Dates: start: 20080312, end: 20080312
  31. HEPARIN SODIUM INJECTION [Suspect]
     Route: 041
     Dates: start: 20080312, end: 20080312
  32. HEPARIN SODIUM INJECTION [Suspect]
     Route: 041
     Dates: start: 20080312, end: 20080312
  33. HEPARIN SODIUM INJECTION [Suspect]
     Route: 041
     Dates: start: 20080312, end: 20080312
  34. HEPARIN SODIUM INJECTION [Suspect]
     Route: 042
     Dates: start: 20080312, end: 20080312
  35. HEPARIN SODIUM INJECTION [Suspect]
     Route: 042
     Dates: start: 20080312, end: 20080312
  36. HEPARIN SODIUM INJECTION [Suspect]
     Route: 042
     Dates: start: 20080312, end: 20080312
  37. HEPARIN SODIUM INJECTION [Suspect]
     Route: 042
     Dates: start: 20080312, end: 20080312
  38. HEPARIN SODIUM INJECTION [Suspect]
     Route: 042
     Dates: start: 20080312, end: 20080312
  39. HEPARIN SODIUM INJECTION [Suspect]
     Route: 042
     Dates: start: 20080312, end: 20080312
  40. HEPARIN SODIUM INJECTION [Suspect]
     Route: 041
     Dates: start: 20080312, end: 20080312
  41. HEPARIN SODIUM INJECTION [Suspect]
     Route: 041
     Dates: start: 20080312, end: 20080312
  42. HEPARIN SODIUM INJECTION [Suspect]
     Route: 041
     Dates: start: 20080312, end: 20080312
  43. HEPARIN SODIUM INJECTION [Suspect]
     Route: 041
     Dates: start: 20080313, end: 20080313
  44. HEPARIN SODIUM INJECTION [Suspect]
     Route: 041
     Dates: start: 20080313, end: 20080313
  45. HEPARIN SODIUM INJECTION [Suspect]
     Route: 041
     Dates: start: 20080313, end: 20080313
  46. HEPARIN SODIUM INJECTION [Suspect]
     Route: 040
     Dates: start: 20080311, end: 20080311
  47. HEPARIN SODIUM INJECTION [Suspect]
     Route: 040
     Dates: start: 20080311, end: 20080311
  48. HEPARIN SODIUM INJECTION [Suspect]
     Route: 040
     Dates: start: 20080311, end: 20080311
  49. NORVASK [Concomitant]
     Indication: DRUG USE FOR UNKNOWN INDICATION
     Route: 065
  50. VIAGRA [Concomitant]
     Indication: DRUG USE FOR UNKNOWN INDICATION
     Route: 065
  51. DIOVAN [Concomitant]
     Indication: DRUG USE FOR UNKNOWN INDICATION
     Route: 065
  52. ASPIRIN [Concomitant]
     Indication: DRUG USE FOR UNKNOWN INDICATION
     Route: 048
     Dates: end: 20080313
  53. INTEGRILIN [Concomitant]
     Indication: DRUG USE FOR UNKNOWN INDICATION
     Route: 042
  54. MUCOMYST                                /USA/ [Concomitant]
     Indication: DRUG USE FOR UNKNOWN INDICATION
     Route: 065
  55. SODIUM BICARBONATE IN PLASTIC CONTAINER [Concomitant]
     Indication: DRUG USE FOR UNKNOWN INDICATION
     Route: 042
  56. VERSED [Concomitant]
     Indication: SEDATION
     Route: 042
  57. PLAVIX [Concomitant]
     Indication: DRUG USE FOR UNKNOWN INDICATION
     Route: 065
     Dates: end: 20080313
  58. MORPHINE [Concomitant]
     Indication: DRUG USE FOR UNKNOWN INDICATION
     Route: 042

REACTIONS (19)
  - ACUTE MYOCARDIAL INFARCTION [None]
  - ANTICOAGULANT THERAPY [None]
  - BRAIN DEATH [None]
  - CARDIAC ARREST [None]
  - CARDIAC DEATH [None]
  - CARDIOMYOPATHY [None]
  - CEREBRAL ARTERY EMBOLISM [None]
  - DIABETES MELLITUS [None]
  - HAEMORRHAGE INTRACRANIAL [None]
  - HAEMORRHAGIC ANAEMIA [None]
  - HYPERTENSION [None]
  - HYPOTENSION [None]
  - PSEUDOMONAL BACTERAEMIA [None]
  - PUPILLARY LIGHT REFLEX TESTS ABNORMAL [None]
  - PUPILS UNEQUAL [None]
  - RENAL FAILURE ACUTE [None]
  - RESPIRATORY FAILURE [None]
  - SUBARACHNOID HAEMORRHAGE [None]
  - UNRESPONSIVE TO STIMULI [None]
